FAERS Safety Report 4727643-X (Version None)
Quarter: 2005Q3

REPORT INFORMATION
  Report Type: 
  Country: None (occurrence: None)
  Receive Date: 20050728
  Receipt Date: 20050728
  Transmission Date: 20060218
  Serious: Yes (Other)
  Sender: FDA-Public Use
  Company Number: None

PATIENT
  Age: 51 Year
  Sex: Female
  Weight: 59.8748 kg

DRUGS (1)
  1. TEGRETOL [Suspect]
     Indication: BIPOLAR DISORDER
     Dosage: 200 MG X DAILY NOW 1/4 2 X DAY
     Dates: start: 20041122, end: 20050524

REACTIONS (5)
  - DIPLOPIA [None]
  - EYE MOVEMENT DISORDER [None]
  - MUSCLE TWITCHING [None]
  - PHOTOSENSITIVITY REACTION [None]
  - TIC [None]
